FAERS Safety Report 18388737 (Version 1)
Quarter: 2020Q4

REPORT INFORMATION
  Report Type: Spontaneous
  Country: GB (occurrence: GB)
  Receive Date: 20201015
  Receipt Date: 20201015
  Transmission Date: 20210114
  Serious: Yes (Other)
  Sender: FDA-Public Use
  Company Number: GB-MYLANLABS-2020M1086077

PATIENT
  Age: 41 Year
  Sex: Male
  Weight: 92 kg

DRUGS (2)
  1. MAXIDEX [Concomitant]
     Active Substance: DEXAMETHASONE
     Dosage: UNK
  2. FLURBIPROFEN. [Suspect]
     Active Substance: FLURBIPROFEN
     Indication: UVEITIS
     Dosage: 150 MILLIGRAM, QD
     Route: 048
     Dates: start: 20200826, end: 20200909

REACTIONS (6)
  - Personality change [Unknown]
  - Anger [Unknown]
  - Irritability [Unknown]
  - Confusional state [Unknown]
  - Personality disorder [Recovering/Resolving]
  - Depressed mood [Unknown]

NARRATIVE: CASE EVENT DATE: 20200826
